FAERS Safety Report 14187311 (Version 1)
Quarter: 2017Q4

REPORT INFORMATION
  Report Type: Report from Study
  Country: US (occurrence: US)
  Receive Date: 20171114
  Receipt Date: 20171114
  Transmission Date: 20180321
  Serious: Yes (Hospitalization)
  Sender: FDA-Public Use
  Company Number: US-TAKEDA-2017TUS023140

PATIENT
  Sex: Male

DRUGS (22)
  1. VEDOLIZUMAB [Suspect]
     Active Substance: VEDOLIZUMAB
     Indication: PRODUCT USED FOR UNKNOWN INDICATION
     Dosage: UNK
     Route: 042
     Dates: start: 20160621
  2. 6-MP [Concomitant]
     Active Substance: MERCAPTOPURINE
     Dosage: UNK
  3. DESLORATADINE. [Concomitant]
     Active Substance: DESLORATADINE
     Dosage: UNK
  4. FLORASTOR [Concomitant]
     Active Substance: SACCHAROMYCES CEREVISIAE
     Dosage: UNK
  5. LEVALBUTEROL                       /01419301/ [Concomitant]
     Dosage: UNK
  6. XOLAIR [Concomitant]
     Active Substance: OMALIZUMAB
     Dosage: UNK
  7. BENZONATATE. [Concomitant]
     Active Substance: BENZONATATE
     Dosage: UNK
  8. VIAGRA [Concomitant]
     Active Substance: SILDENAFIL CITRATE
     Dosage: UNK
  9. APIDRA [Concomitant]
     Active Substance: INSULIN GLULISINE
     Dosage: UNK
  10. ADVAIR HFA [Concomitant]
     Active Substance: FLUTICASONE PROPIONATE\SALMETEROL XINAFOATE
     Dosage: UNK
  11. PROAIR HFA [Concomitant]
     Active Substance: ALBUTEROL SULFATE
     Dosage: UNK
  12. PREDNISONE. [Concomitant]
     Active Substance: PREDNISONE
     Dosage: UNK
  13. CLONAZEPAM. [Concomitant]
     Active Substance: CLONAZEPAM
     Dosage: UNK
  14. LIDOCAINE                          /00033402/ [Concomitant]
     Active Substance: LIDOCAINE
     Dosage: UNK
  15. LANTUS [Concomitant]
     Active Substance: INSULIN GLARGINE
     Dosage: UNK
  16. SUDAFED [Concomitant]
     Active Substance: PSEUDOEPHEDRINE HYDROCHLORIDE
     Dosage: UNK
  17. METOPROLOL. [Concomitant]
     Active Substance: METOPROLOL
     Dosage: UNK
  18. VITAMIN D3 [Concomitant]
     Active Substance: CHOLECALCIFEROL
     Dosage: UNK
  19. CALCITONIN                         /00371903/ [Concomitant]
     Active Substance: CALCITONIN SALMON
     Dosage: UNK
     Route: 045
  20. WELLBUTRIN [Concomitant]
     Active Substance: BUPROPION HYDROCHLORIDE
     Dosage: UNK
  21. LANSOPRAZOLE. [Concomitant]
     Active Substance: LANSOPRAZOLE
     Dosage: UNK
  22. ACCOLATE [Concomitant]
     Active Substance: ZAFIRLUKAST
     Dosage: UNK

REACTIONS (2)
  - Chronic obstructive pulmonary disease [Recovered/Resolved]
  - Bronchitis [Recovered/Resolved]

NARRATIVE: CASE EVENT DATE: 20171009
